FAERS Safety Report 15678362 (Version 1)
Quarter: 2018Q4

REPORT INFORMATION
  Report Type: Spontaneous
  Country: GB (occurrence: GB)
  Receive Date: 20181201
  Receipt Date: 20181201
  Transmission Date: 20190205
  Serious: Yes (Disabling, Other)
  Sender: FDA-Public Use
  Company Number: GB-TEVA-2018-GB-980981

PATIENT
  Age: 65 Year
  Sex: Female

DRUGS (9)
  1. CLARITHROMYCIN. [Suspect]
     Active Substance: CLARITHROMYCIN
     Indication: PLEURISY
     Dosage: 1000 MILLIGRAM DAILY;
     Route: 048
     Dates: start: 20180117, end: 20180123
  2. AMIODARONE [Suspect]
     Active Substance: AMIODARONE
     Route: 065
     Dates: start: 20180409, end: 20180524
  3. TRAMADOL. [Suspect]
     Active Substance: TRAMADOL
     Route: 065
  4. APIXABAN [Concomitant]
     Active Substance: APIXABAN
  5. OMEPRAZOLE. [Concomitant]
     Active Substance: OMEPRAZOLE
     Dates: start: 20180118
  6. HYDROXYZINE [Suspect]
     Active Substance: HYDROXYZINE HYDROCHLORIDE
     Indication: MUSCLE SPASMS
     Route: 065
     Dates: end: 20180728
  7. BISOPROLOL FUMARATE. [Concomitant]
     Active Substance: BISOPROLOL FUMARATE
  8. FUROSEMIDE. [Concomitant]
     Active Substance: FUROSEMIDE
  9. NAPROXEN. [Concomitant]
     Active Substance: NAPROXEN
     Dates: start: 20180118

REACTIONS (7)
  - Joint swelling [Recovered/Resolved]
  - Dyspnoea exertional [Recovered/Resolved]
  - Contraindicated product administered [Unknown]
  - Mitral valve incompetence [Unknown]
  - Mitral valve prolapse [Unknown]
  - Atrial fibrillation [Recovered/Resolved with Sequelae]
  - Heart rate increased [Recovered/Resolved with Sequelae]

NARRATIVE: CASE EVENT DATE: 20180117
